FAERS Safety Report 23058762 (Version 2)
Quarter: 2023Q4

REPORT INFORMATION
  Report Type: Spontaneous
  Country: US (occurrence: US)
  Receive Date: 20231012
  Receipt Date: 20231023
  Transmission Date: 20240110
  Serious: Yes (Life-Threatening, Hospitalization, Disabling)
  Sender: FDA-Public Use
  Company Number: US-TEVA-2023-US-2933030

PATIENT
  Age: 16 Year
  Sex: Female

DRUGS (4)
  1. FENTANYL [Suspect]
     Active Substance: FENTANYL\FENTANYL CITRATE
     Indication: Drug abuse
     Dosage: INSUFFLATION
     Route: 045
  2. ALPRAZOLAM [Suspect]
     Active Substance: ALPRAZOLAM
     Indication: Drug abuse
     Dosage: INSUFFLATION
     Route: 045
  3. NALOXONE [Suspect]
     Active Substance: NALOXONE
     Indication: Overdose
     Dosage: 4 MG
     Route: 065
  4. FLUMAZENIL [Suspect]
     Active Substance: FLUMAZENIL
     Indication: Overdose
     Dosage: 2 MG
     Route: 042

REACTIONS (6)
  - Deafness neurosensory [Not Recovered/Not Resolved]
  - Respiratory depression [Recovered/Resolved]
  - Mental status changes [Unknown]
  - Drug ineffective [Unknown]
  - Drug abuse [Unknown]
  - Intentional overdose [Unknown]
